FAERS Safety Report 5725177-7 (Version None)
Quarter: 2008Q2

REPORT INFORMATION
  Report Type: 
  Country: None (occurrence: None)
  Receive Date: 20080501
  Receipt Date: 20080428
  Transmission Date: 20081010
  Serious: Yes (Congenital Anomaly)
  Sender: FDA-Public Use
  Company Number: A0709406A

PATIENT
  Sex: Male
  Weight: 3.5 kg

DRUGS (10)
  1. RETROVIR [Suspect]
     Indication: HIV INFECTION
     Dates: start: 20070308, end: 20070308
  2. TRUVADA [Concomitant]
     Indication: HIV INFECTION
     Dosage: 1UNIT PER DAY
     Dates: start: 20061121
  3. NORVIR [Concomitant]
     Indication: HIV INFECTION
     Dosage: 100MG PER DAY
     Dates: start: 20061121
  4. REYATAZ [Concomitant]
     Indication: HIV INFECTION
     Dosage: 300MG PER DAY
     Dates: start: 20061121
  5. AZT [Concomitant]
     Route: 048
     Dates: start: 20070308, end: 20070419
  6. HYDROXYZINE [Concomitant]
  7. SEROQUEL [Concomitant]
  8. METHADONE HCL [Concomitant]
  9. ALCOHOL [Concomitant]
  10. HEROIN [Concomitant]

REACTIONS (9)
  - ATRIAL SEPTAL DEFECT [None]
  - DRUG EXPOSURE DURING PREGNANCY [None]
  - LEFT VENTRICULAR DYSFUNCTION [None]
  - MITRAL VALVE INCOMPETENCE [None]
  - NEONATAL RESPIRATORY DEPRESSION [None]
  - SUPRAVENTRICULAR TACHYCARDIA [None]
  - TRICUSPID VALVE INCOMPETENCE [None]
  - WITHDRAWAL SYNDROME [None]
  - WOLFF-PARKINSON-WHITE SYNDROME [None]
